FAERS Safety Report 8606627-5 (Version None)
Quarter: 2012Q3

REPORT INFORMATION
  Report Type: 
  Country: None (occurrence: None)
  Receive Date: 20120820
  Receipt Date: 20120816
  Transmission Date: 20120928
  Serious: Yes (Hospitalization)
  Sender: FDA-Public Use
  Company Number: CN-BAYER-2012-084920

PATIENT
  Age: 56 Year
  Sex: Male

DRUGS (3)
  1. ATORVASTATIN [Concomitant]
     Route: 048
  2. ASPIRIN [Suspect]
     Route: 048
  3. NIMODIPINE [Concomitant]
     Route: 048

REACTIONS (2)
  - CHOKING SENSATION [None]
  - INTENTIONAL DRUG MISUSE [None]
